FAERS Safety Report 13346466 (Version 3)
Quarter: 2017Q2

REPORT INFORMATION
  Report Type: Spontaneous
  Country: US (occurrence: US)
  Receive Date: 20170317
  Receipt Date: 20170509
  Transmission Date: 20170830
  Serious: No
  Sender: FDA-Public Use
  Company Number: US-ST. RENATUS-2017STR00005

PATIENT
  Age: 23 Year
  Sex: Female
  Weight: 72.56 kg

DRUGS (6)
  1. NORGESTIMATE, ETHINYL ESTRADIOL [Concomitant]
  2. CHLORHEXIDINE MOUTHWASH [Suspect]
     Active Substance: CHLORHEXIDINE
     Dosage: UNK, 2X/DAY
     Dates: start: 20170304
  3. ALBUTEROL SULFATE IN [Concomitant]
     Active Substance: ALBUTEROL SULFATE
  4. XANAX [Concomitant]
     Active Substance: ALPRAZOLAM
     Dosage: UNK
     Dates: start: 20070106
  5. KOVANAZE [Suspect]
     Active Substance: OXYMETAZOLINE HYDROCHLORIDE\TETRACAINE HYDROCHLORIDE
     Indication: WISDOM TEETH REMOVAL
     Dosage: 2 DOSAGE UNITS, ONCE
     Route: 045
     Dates: start: 20170227, end: 20170227
  6. PRENATAL VITAMIN WITH FERROUS FUMURATE AND FOLIC ACID [Concomitant]

REACTIONS (14)
  - Off label use [Recovered/Resolved]
  - Cold-stimulus headache [Unknown]
  - Dysgeusia [Unknown]
  - Nasal mucosal discolouration [Recovering/Resolving]
  - Infection [Recovered/Resolved]
  - Rhinorrhoea [Unknown]
  - Insomnia [Not Recovered/Not Resolved]
  - Paranasal sinus discomfort [Unknown]
  - Application site burn [Unknown]
  - Epistaxis [Recovered/Resolved]
  - Nausea [Unknown]
  - Facial pain [Recovering/Resolving]
  - Nasal congestion [Unknown]
  - Sinus disorder [Unknown]

NARRATIVE: CASE EVENT DATE: 2017
